FAERS Safety Report 4949078-7 (Version None)
Quarter: 2006Q1

REPORT INFORMATION
  Report Type: 
  Country: None (occurrence: None)
  Receive Date: 20060321
  Receipt Date: 20050930
  Transmission Date: 20060701
  Serious: Yes (Hospitalization, Other)
  Sender: FDA-Public Use
  Company Number: US-MERCK-0510USA02108

PATIENT
  Age: 62 Year
  Sex: Female
  Weight: 134 kg

DRUGS (2)
  1. VIOXX [Suspect]
     Indication: ARTHRITIS
     Route: 048
     Dates: start: 20001001, end: 20030601
  2. VIOXX [Suspect]
     Route: 048
     Dates: start: 20001001, end: 20030601

REACTIONS (8)
  - ARTERIAL OCCLUSIVE DISEASE [None]
  - CARDIAC FAILURE [None]
  - CORONARY ARTERY DISEASE [None]
  - DYSPNOEA [None]
  - EMOTIONAL DISORDER [None]
  - NERVOUSNESS [None]
  - OVERDOSE [None]
  - THROMBOSIS [None]
